FAERS Safety Report 7257669-6 (Version None)
Quarter: 2011Q1

REPORT INFORMATION
  Report Type: 
  Country: None (occurrence: None)
  Receive Date: 20110129
  Receipt Date: 20100607
  Transmission Date: 20110831
  Serious: No
  Sender: FDA-Public Use
  Company Number: US-ABBOTT-10P-163-0644130-00

PATIENT
  Sex: Female
  Weight: 34.958 kg

DRUGS (6)
  1. HUMIRA [Suspect]
     Dosage: EVERY 7 TO 10 DAYS
     Dates: start: 20100429
  2. LANSOPRAZOLE [Concomitant]
     Indication: GASTROOESOPHAGEAL REFLUX DISEASE
  3. ZOFRAN [Concomitant]
     Indication: NAUSEA
  4. COLAZAL [Concomitant]
     Indication: PRODUCT USED FOR UNKNOWN INDICATION
  5. HUMIRA [Suspect]
     Indication: CROHN'S DISEASE
     Dates: start: 20090101
  6. PEPTAMEN JUNIOR [Concomitant]
     Indication: CROHN'S DISEASE
     Dosage: FEEDING TUBE
     Route: 050

REACTIONS (4)
  - WEIGHT GAIN POOR [None]
  - DEVICE MALFUNCTION [None]
  - INJECTION SITE PAIN [None]
  - DRUG DOSE OMISSION [None]
